FAERS Safety Report 8356333-X (Version None)
Quarter: 2012Q2

REPORT INFORMATION
  Report Type: 
  Country: None (occurrence: None)
  Receive Date: 20120514
  Receipt Date: 20120507
  Transmission Date: 20120825
  Serious: Yes (Other)
  Sender: FDA-Public Use
  Company Number: NO-BAYER-2012-044204

PATIENT
  Age: 38 Year
  Sex: Female

DRUGS (1)
  1. MIRENA [Suspect]
     Indication: PRODUCT USED FOR UNKNOWN INDICATION
     Dosage: 20 ?G/D, CONT
     Dates: start: 20120504, end: 20120504

REACTIONS (3)
  - DEVICE EXPULSION [None]
  - PROCEDURAL HAEMORRHAGE [None]
  - DEVICE DIFFICULT TO USE [None]
